FAERS Safety Report 14272798 (Version 2)
Quarter: 2018Q4

REPORT INFORMATION
  Report Type: Spontaneous
  Country: US (occurrence: US)
  Receive Date: 20171211
  Receipt Date: 20181213
  Transmission Date: 20190204
  Serious: Yes (Hospitalization, Other)
  Sender: FDA-Public Use
  Company Number: US-OTSUKA-2017_011121

PATIENT
  Age: 50 Year
  Sex: Female

DRUGS (14)
  1. RISPERDAL [Concomitant]
     Active Substance: RISPERIDONE
     Indication: PRODUCT USED FOR UNKNOWN INDICATION
     Dosage: 1 MG, QD
     Route: 065
  2. RISPERDAL [Concomitant]
     Active Substance: RISPERIDONE
     Indication: PRODUCT USED FOR UNKNOWN INDICATION
     Dosage: 2 MG, BID
     Route: 065
  3. EFFEXOR XR [Concomitant]
     Active Substance: VENLAFAXINE HYDROCHLORIDE
     Dosage: 150 MG, QD (Q.A.M)
     Route: 065
  4. TRAZODONE [Concomitant]
     Active Substance: TRAZODONE HYDROCHLORIDE
     Dosage: 200 MG, QD (2 DF, QHS)
  5. ATIVAN [Concomitant]
     Active Substance: LORAZEPAM
     Indication: PRODUCT USED FOR UNKNOWN INDICATION
     Dosage: UNK (PRN)
     Route: 065
  6. DEPAKOTE [Concomitant]
     Active Substance: DIVALPROEX SODIUM
     Dosage: 50 MG, QD
     Route: 065
  7. SYNTHROID [Concomitant]
     Active Substance: LEVOTHYROXINE SODIUM
     Indication: PRODUCT USED FOR UNKNOWN INDICATION
     Dosage: 50 ?G, QD (IN MORNING)
     Route: 065
  8. DEPAKOTE [Concomitant]
     Active Substance: DIVALPROEX SODIUM
     Indication: PRODUCT USED FOR UNKNOWN INDICATION
     Dosage: 1 DF, BID
     Route: 048
  9. ATARAX [Concomitant]
     Active Substance: HYDROXYZINE HYDROCHLORIDE
     Indication: PRODUCT USED FOR UNKNOWN INDICATION
     Dosage: 10 MG, TID (PRN)
     Route: 065
  10. ABILIFY [Suspect]
     Active Substance: ARIPIPRAZOLE
     Indication: BIPOLAR DISORDER
     Dosage: 10 MG, UNK
     Route: 065
     Dates: end: 20131118
  11. EFFEXOR XR [Concomitant]
     Active Substance: VENLAFAXINE HYDROCHLORIDE
     Dosage: 37.5 MG, QD (Q.A.M)
     Route: 065
  12. TRAZODONE [Concomitant]
     Active Substance: TRAZODONE HYDROCHLORIDE
     Indication: PRODUCT USED FOR UNKNOWN INDICATION
     Dosage: 150 MG, QD
     Route: 065
  13. REMERON [Concomitant]
     Active Substance: MIRTAZAPINE
     Indication: PRODUCT USED FOR UNKNOWN INDICATION
     Dosage: 15 MG, QD
     Route: 065
  14. EFFEXOR XR [Concomitant]
     Active Substance: VENLAFAXINE HYDROCHLORIDE
     Indication: PRODUCT USED FOR UNKNOWN INDICATION
     Dosage: 75 MG, QD (Q.A.M)
     Route: 065

REACTIONS (29)
  - Hospitalisation [Recovered/Resolved]
  - Nicotine dependence [Unknown]
  - Major depression [Unknown]
  - Anxiety [Unknown]
  - Constipation [Unknown]
  - Condition aggravated [Recovered/Resolved]
  - Mean cell volume increased [Unknown]
  - Hypomania [Unknown]
  - Blood chloride increased [Unknown]
  - Cataract [Unknown]
  - Mood swings [Unknown]
  - Mean cell haemoglobin increased [Unknown]
  - Blood creatinine decreased [Unknown]
  - Aspartate aminotransferase increased [Unknown]
  - Drug level decreased [Unknown]
  - Blood calcium decreased [Unknown]
  - Anger [Unknown]
  - Personal relationship issue [Unknown]
  - Gambling disorder [Recovered/Resolved]
  - Drug dependence [Unknown]
  - White blood cell count increased [Unknown]
  - Obsessive-compulsive disorder [Recovered/Resolved]
  - Suicide attempt [Unknown]
  - Suicidal ideation [Unknown]
  - Post-traumatic stress disorder [Unknown]
  - Hallucination, auditory [Unknown]
  - Alcoholism [Unknown]
  - Agitation [Unknown]
  - Economic problem [Unknown]

NARRATIVE: CASE EVENT DATE: 201202
